FAERS Safety Report 5061255-6 (Version None)
Quarter: 2006Q3

REPORT INFORMATION
  Report Type: 
  Country: None (occurrence: None)
  Receive Date: 20060720
  Receipt Date: 20060707
  Transmission Date: 20061208
  Serious: Yes (Hospitalization)
  Sender: FDA-Public Use
  Company Number: 2006084871

PATIENT
  Age: 68 Year
  Sex: Male
  Weight: 77 kg

DRUGS (7)
  1. SUTENT [Suspect]
     Indication: METASTATIC RENAL CELL CARCINOMA
     Dosage: UNK (50 MG, ONCE-INTERVAL: DAILY) ORAL,
     Route: 048
     Dates: start: 20060108, end: 20060215
  2. SUTENT [Suspect]
     Indication: METASTATIC RENAL CELL CARCINOMA
     Dosage: UNK (50 MG, ONCE-INTERVAL: DAILY) ORAL,
     Route: 048
     Dates: start: 20060524, end: 20060621
  3. BISOPROLOL FUMARATE [Concomitant]
  4. FERROUS SULFATE TAB [Concomitant]
  5. BERLTHYROX      (LEVOTHYROXINE SODIUM) [Concomitant]
  6. FUROSEMIDE [Concomitant]
  7. EMBOLEX [Concomitant]

REACTIONS (9)
  - ARTHRALGIA [None]
  - DYSGEUSIA [None]
  - FATIGUE [None]
  - LEFT VENTRICULAR FAILURE [None]
  - MALIGNANT NEOPLASM PROGRESSION [None]
  - MUCOSAL INFLAMMATION [None]
  - MYALGIA [None]
  - PLEURAL EFFUSION [None]
  - PULMONARY OEDEMA [None]
